FAERS Safety Report 8829821 (Version 2)
Quarter: 2012Q4

REPORT INFORMATION
  Report Type: Spontaneous
  Country: AU (occurrence: None)
  Receive Date: 20121004
  Receipt Date: 20121012
  Transmission Date: 20130627
  Serious: Yes (Hospitalization)
  Sender: FDA-Public Use
  Company Number: ACO_32048_2012

PATIENT
  Age: 63 Year
  Sex: Female

DRUGS (9)
  1. FAMPRIDINE [Suspect]
     Indication: MULTIPLE SCLEROSIS
     Route: 048
     Dates: start: 20120504
  2. BACLOFEN [Concomitant]
  3. ASPIRIN (ACETYLSALICYLIC ACID) [Concomitant]
  4. TYSABRI (NATALIZUMAB) [Concomitant]
  5. FISH OIL (FISH OIL) [Concomitant]
  6. METAMUCIL (PSYLLIUM HYDROPHILIC MUCILLOID) [Concomitant]
  7. MOVICOL [Concomitant]
  8. PANADOL OSTEO (PARACETAMOL) [Concomitant]
  9. OXYCONTIN (OXYCODONE HYDROCHLORIDE) [Concomitant]

REACTIONS (3)
  - Musculoskeletal pain [None]
  - Musculoskeletal stiffness [None]
  - Joint manipulation [None]
